FAERS Safety Report 23469616 (Version 1)
Quarter: 2024Q1

REPORT INFORMATION
  Report Type: Spontaneous
  Country: JP (occurrence: JP)
  Receive Date: 20240202
  Receipt Date: 20240202
  Transmission Date: 20240409
  Serious: Yes (Hospitalization, Other)
  Sender: FDA-Public Use
  Company Number: JP-BAXTER-2024BAX011285

PATIENT
  Age: 44 Year
  Sex: Male

DRUGS (1)
  1. REGUNEAL LCA [Suspect]
     Active Substance: CALCIUM CHLORIDE\DEXTROSE MONOHYDRATE\HYDROCHLORIC ACID\MAGNESIUM CHLORIDE\SODIUM BICARBONATE\SODIUM
     Indication: Chronic kidney disease
     Dosage: 1800ML, 4 (DETAILS NOT REPORTED)
     Route: 033
     Dates: start: 20231201

REACTIONS (2)
  - Cardiac failure [Recovering/Resolving]
  - Hypervolaemia [Unknown]

NARRATIVE: CASE EVENT DATE: 20240124
